FAERS Safety Report 5137797-1 (Version None)
Quarter: 2006Q4

REPORT INFORMATION
  Report Type: 
  Country: None (occurrence: None)
  Receive Date: 20061030
  Receipt Date: 20060116
  Transmission Date: 20070319
  Serious: No
  Sender: FDA-Public Use
  Company Number: US-GLAXOSMITHKLINE-A0589428A

PATIENT
  Age: 84 Year
  Sex: Female

DRUGS (4)
  1. ADVAIR HFA [Suspect]
     Indication: ASTHMA
     Dosage: 1PUFF TWICE PER DAY
     Route: 055
     Dates: start: 20060103, end: 20060114
  2. VITAMINS [Concomitant]
  3. FOSAMAX [Concomitant]
  4. EVISTA [Concomitant]

REACTIONS (1)
  - RASH [None]
